FAERS Safety Report 17362409 (Version 2)
Quarter: 2020Q4

REPORT INFORMATION
  Report Type: Spontaneous
  Country: US (occurrence: US)
  Receive Date: 20200203
  Receipt Date: 20201103
  Transmission Date: 20210113
  Serious: Yes (Death, Hospitalization, Other)
  Sender: FDA-Public Use
  Company Number: US-SHIRE-US202003812

PATIENT
  Sex: Male

DRUGS (2)
  1. TAKHZYRO [Suspect]
     Active Substance: LANADELUMAB-FLYO
     Dosage: 2 VIALS, 1X A MONTH
     Route: 065
     Dates: start: 20181001
  2. TAKHZYRO [Suspect]
     Active Substance: LANADELUMAB-FLYO
     Indication: HEREDITARY ANGIOEDEMA
     Dosage: 2 VIALS, 1X A MONTH
     Route: 065

REACTIONS (1)
  - Colon cancer [Fatal]
